FAERS Safety Report 8554501-5 (Version None)
Quarter: 2012Q3

REPORT INFORMATION
  Report Type: 
  Country: None (occurrence: None)
  Receive Date: 20120731
  Receipt Date: 20120717
  Transmission Date: 20120928
  Serious: No
  Sender: FDA-Public Use
  Company Number: US-ASTRAZENECA-2012SE30765

PATIENT
  Age: 82 Year
  Sex: Female

DRUGS (6)
  1. POTASSIUM [Concomitant]
  2. VITAMIN D [Concomitant]
  3. HYDROCODONE [Concomitant]
  4. CRESTOR [Suspect]
     Route: 048
  5. CIMEDINE [Concomitant]
  6. ZOLOFT [Concomitant]

REACTIONS (13)
  - HYPERTENSION [None]
  - MUSCLE SPASMS [None]
  - FATIGUE [None]
  - BURSITIS [None]
  - FALL [None]
  - DRUG DOSE OMISSION [None]
  - GAIT DISTURBANCE [None]
  - DYSPEPSIA [None]
  - BLOOD CHOLESTEROL INCREASED [None]
  - DIZZINESS [None]
  - LIMB DISCOMFORT [None]
  - VITAMIN D DECREASED [None]
  - DIABETES MELLITUS [None]
